FAERS Safety Report 26187716 (Version 1)
Quarter: 2025Q4

REPORT INFORMATION
  Report Type: Spontaneous
  Country: US (occurrence: US)
  Receive Date: 20251222
  Receipt Date: 20251222
  Transmission Date: 20260118
  Serious: Yes (Other)
  Sender: TEVA
  Company Number: US-TEVA-VS-3404782

PATIENT
  Age: 44 Year
  Sex: Female

DRUGS (1)
  1. NIFEDIPINE [Suspect]
     Active Substance: NIFEDIPINE
     Indication: Hypertension
     Dosage: ADMINISTERED FIRST DOSE
     Route: 065

REACTIONS (2)
  - Myocardial ischaemia [Unknown]
  - Atrial fibrillation [Recovering/Resolving]
